FAERS Safety Report 7765492-9 (Version None)
Quarter: 2011Q3

REPORT INFORMATION
  Report Type: 
  Country: None (occurrence: None)
  Receive Date: 20110921
  Receipt Date: 20110919
  Transmission Date: 20111222
  Serious: Yes (Hospitalization)
  Sender: FDA-Public Use
  Company Number: US-SHIRE-ALL1-2011-03468

PATIENT
  Sex: Female

DRUGS (2)
  1. CARBATROL [Suspect]
     Indication: CONVULSION
     Dosage: 300 MG, 2X/DAY:BID
     Route: 048
     Dates: end: 20110801
  2. UNSPECIFIED MEDICATIONS [Concomitant]
     Indication: PRODUCT USED FOR UNKNOWN INDICATION
     Dosage: UNK, UNKNOWN
     Route: 065

REACTIONS (4)
  - PSYCHOTIC DISORDER [None]
  - TOOTH DEVELOPMENT DISORDER [None]
  - GINGIVAL RECESSION [None]
  - JOINT CREPITATION [None]
